FAERS Safety Report 6620668-9 (Version None)
Quarter: 2010Q1

REPORT INFORMATION
  Report Type: 
  Country: None (occurrence: None)
  Receive Date: 20100309
  Receipt Date: 20090821
  Transmission Date: 20100710
  Serious: Yes (Hospitalization)
  Sender: FDA-Public Use
  Company Number: US-BIOGENIDEC-193581

PATIENT
  Age: 45 Year
  Sex: Male

DRUGS (3)
  1. AVONEX [Suspect]
     Indication: MULTIPLE SCLEROSIS
     Route: 030
     Dates: start: 20030801, end: 20030101
  2. AVONEX [Suspect]
     Route: 030
     Dates: start: 20020701, end: 20030801
  3. AVONEX [Suspect]
     Route: 030
     Dates: start: 20040312

REACTIONS (1)
  - MULTIPLE SCLEROSIS RELAPSE [None]
